FAERS Safety Report 5401857-8 (Version None)
Quarter: 2007Q3

REPORT INFORMATION
  Report Type: 
  Country: None (occurrence: None)
  Receive Date: 20070726
  Receipt Date: 20070713
  Transmission Date: 20080115
  Serious: Yes (Other)
  Sender: FDA-Public Use
  Company Number: A-CH2007-16918

PATIENT
  Age: 59 Year
  Sex: Female

DRUGS (4)
  1. TRACLEER [Suspect]
     Indication: PULMONARY HYPERTENSION
     Dosage: 125 MG, BID, ORAL
     Route: 048
     Dates: start: 20050409
  2. SOLOSA (GLIMEPIRIDE) [Concomitant]
  3. AFLEN (TRIFLUSAL) [Concomitant]
  4. OXYGEN (OXYGEN) [Concomitant]

REACTIONS (3)
  - DYSARTHRIA [None]
  - HAEMATOCRIT INCREASED [None]
  - HYPOAESTHESIA [None]
